FAERS Safety Report 19907430 (Version 2)
Quarter: 2022Q1

REPORT INFORMATION
  Report Type: Spontaneous
  Country: US (occurrence: US)
  Receive Date: 20211001
  Receipt Date: 20220302
  Transmission Date: 20220423
  Serious: No
  Sender: FDA-Public Use
  Company Number: US-GW PHARMA-202109USGW04709

PATIENT

DRUGS (2)
  1. EPIDIOLEX [Suspect]
     Active Substance: CANNABIDIOL
     Indication: Idiopathic generalised epilepsy
     Dosage: 300 MILLIGRAM, BID
     Route: 048
     Dates: start: 202010
  2. EPIDIOLEX [Suspect]
     Active Substance: CANNABIDIOL
     Indication: Epilepsy
     Dosage: 600 MILLIGRAM
     Route: 048
     Dates: start: 202101

REACTIONS (4)
  - Dysphagia [Unknown]
  - Seizure [Unknown]
  - Seizure [Unknown]
  - Product use in unapproved indication [Unknown]
